FAERS Safety Report 9684003 (Version 2)
Quarter: 2013Q4

REPORT INFORMATION
  Report Type: Spontaneous
  Country: JP (occurrence: JP)
  Receive Date: 20131112
  Receipt Date: 20131119
  Transmission Date: 20140711
  Serious: Yes (Other)
  Sender: FDA-Public Use
  Company Number: JP-GE HEALTHCARE MEDICAL DIAGNOSTICS-OSCN-PR-1311S-0091

PATIENT
  Age: 70 Year
  Sex: Female

DRUGS (2)
  1. OMNISCAN [Suspect]
     Indication: NECK MASS
     Route: 042
     Dates: start: 20131007, end: 20131007
  2. OMNISCAN [Suspect]
     Indication: DIAGNOSTIC PROCEDURE

REACTIONS (1)
  - Anaphylactoid reaction [Recovered/Resolved]
